FAERS Safety Report 6145821-2 (Version None)
Quarter: 2009Q2

REPORT INFORMATION
  Report Type: 
  Country: None (occurrence: None)
  Receive Date: 20090406
  Receipt Date: 20090406
  Transmission Date: 20091009
  Serious: Yes (Hospitalization)
  Sender: FDA-Public Use
  Company Number: None

PATIENT
  Sex: Male
  Weight: 91.173 kg

DRUGS (14)
  1. ISOSORBIDE DINITRATE [Suspect]
     Dosage: 30 MG 1 PILL DAILY
  2. INSULIN [Concomitant]
  3. AMARYL [Concomitant]
  4. ASPIRIN [Concomitant]
  5. IMDUR [Concomitant]
  6. LISINOPRIL [Concomitant]
  7. MULTI-VITAMIN [Concomitant]
  8. B12 VITAMIN [Concomitant]
  9. DARVOCET [Concomitant]
  10. ALLOPURINOL [Concomitant]
  11. LIPITOR [Concomitant]
  12. CALCIUM PLUS VITAMIN D [Concomitant]
  13. LOVAZA [Concomitant]
  14. PRILOSEC [Concomitant]

REACTIONS (4)
  - ASTHENIA [None]
  - DIZZINESS [None]
  - EYE ROLLING [None]
  - LOSS OF CONSCIOUSNESS [None]
